FAERS Safety Report 5781374-6 (Version None)
Quarter: 2008Q2

REPORT INFORMATION
  Report Type: 
  Country: None (occurrence: None)
  Receive Date: 20080623
  Receipt Date: 20080612
  Transmission Date: 20081010
  Serious: Yes (Death, Other)
  Sender: FDA-Public Use
  Company Number: US-TYCO HEALTHCARE/MALLINCKRODT-T200801008

PATIENT

DRUGS (2)
  1. METHADOSE [Suspect]
     Indication: PAIN
     Dates: start: 20060801, end: 20060801
  2. METHADOSE [Suspect]
     Indication: PHARYNGOLARYNGEAL PAIN

REACTIONS (2)
  - DRUG DIVERSION [None]
  - OVERDOSE [None]
